FAERS Safety Report 15132821 (Version 3)
Quarter: 2018Q3

REPORT INFORMATION
  Report Type: Spontaneous
  Country: DE (occurrence: DE)
  Receive Date: 20180712
  Receipt Date: 20180801
  Transmission Date: 20181010
  Serious: Yes (Hospitalization, Other)
  Sender: FDA-Public Use
  Company Number: DE-TEVA-2018-DE-924247

PATIENT
  Age: 39 Year
  Sex: Female

DRUGS (4)
  1. TRIPTOFEM 0,2 MG [Suspect]
     Active Substance: TRIPTORELIN ACETATE
     Route: 065
  2. ORGALUTRAN [Suspect]
     Active Substance: GANIRELIX ACETATE
     Route: 065
  3. OVALEAP 2500 IU [Suspect]
     Active Substance: FOLLITROPIN
     Route: 065
  4. LETROZOLE. [Suspect]
     Active Substance: LETROZOLE
     Route: 065

REACTIONS (1)
  - Ovarian hyperstimulation syndrome [Recovered/Resolved]

NARRATIVE: CASE EVENT DATE: 20170214
